FAERS Safety Report 7651258-7 (Version None)
Quarter: 2011Q3

REPORT INFORMATION
  Report Type: 
  Country: None (occurrence: None)
  Receive Date: 20110727
  Receipt Date: 20110715
  Transmission Date: 20111222
  Serious: Yes (Life-Threatening, Hospitalization)
  Sender: FDA-Public Use
  Company Number: 1000021942

PATIENT
  Age: 85 Year
  Sex: Male

DRUGS (7)
  1. MEMANTINE [Suspect]
     Indication: DEMENTIA ALZHEIMER'S TYPE
     Dosage: 5 MG, ORAL; 10MG (5 MG, 2 IN 1 D), ORAL;
     Route: 048
     Dates: start: 20110617, end: 20110623
  2. MEMANTINE [Suspect]
     Indication: DEMENTIA ALZHEIMER'S TYPE
     Dosage: 5 MG, ORAL; 10MG (5 MG, 2 IN 1 D), ORAL;
     Route: 048
     Dates: start: 20110610, end: 20110616
  3. FAMOTIDINE [Concomitant]
  4. ARICEPT D (DONEPEZIL) [Concomitant]
  5. MOBIC [Concomitant]
  6. GASMOTIN (MOSAPRIDE CITRATE) [Concomitant]
  7. MEMANTINE [Suspect]
     Indication: DEMENTIA ALZHEIMER'S TYPE
     Dosage: 15 MG, ORAL
     Route: 048
     Dates: start: 20110624, end: 20110628

REACTIONS (7)
  - PLATELET COUNT DECREASED [None]
  - ACTIVATED PARTIAL THROMBOPLASTIN TIME PROLONGED [None]
  - CEREBRAL ARTERIOVENOUS MALFORMATION HAEMORRHAGIC [None]
  - PLATELET COUNT INCREASED [None]
  - BLOOD FIBRINOGEN INCREASED [None]
  - BEDRIDDEN [None]
  - GASTRITIS [None]
